FAERS Safety Report 24550324 (Version 2)
Quarter: 2025Q3

REPORT INFORMATION
  Report Type: Report from Study
  Country: US (occurrence: US)
  Receive Date: 20241025
  Receipt Date: 20250908
  Transmission Date: 20251021
  Serious: No
  Sender: SUNOVION
  Company Number: US-SUMITOMO PHARMA SWITZERLAND GMBH-2024SPA004247

PATIENT
  Age: 79 Year
  Sex: Male

DRUGS (13)
  1. ORGOVYX [Suspect]
     Active Substance: RELUGOLIX
     Indication: Prostate cancer
     Dosage: 360 MG, SINGLE
     Route: 048
  2. ORGOVYX [Suspect]
     Active Substance: RELUGOLIX
     Dosage: 120 MG, QD
     Route: 048
  3. ASPIRIN [Concomitant]
     Active Substance: ASPIRIN
  4. CLORAZEPATE DIPOTASSIUM [Concomitant]
     Active Substance: CLORAZEPATE DIPOTASSIUM
  5. COLESEVELAM [Concomitant]
     Active Substance: COLESEVELAM
  6. EZETIMIBE [Concomitant]
     Active Substance: EZETIMIBE
  7. LEQVIO [Concomitant]
     Active Substance: INCLISIRAN SODIUM
  8. METOPROLOL SUCCINATE [Concomitant]
     Active Substance: METOPROLOL SUCCINATE
  9. NITROGLYCERIN [Concomitant]
     Active Substance: NITROGLYCERIN
  10. VITAMIN D3 [Concomitant]
     Active Substance: CHOLECALCIFEROL
  11. B12 [Concomitant]
  12. DIFLUPREDNATE [Concomitant]
     Active Substance: DIFLUPREDNATE
  13. CEFPODOXIME [Concomitant]
     Active Substance: CEFPODOXIME

REACTIONS (2)
  - Urinary tract infection [Unknown]
  - Hot flush [Unknown]
